FAERS Safety Report 20838131 (Version 1)
Quarter: 2022Q2

REPORT INFORMATION
  Report Type: Spontaneous
  Country: US (occurrence: US)
  Receive Date: 20220517
  Receipt Date: 20220517
  Transmission Date: 20220721
  Serious: No
  Sender: FDA-Public Use
  Company Number: US-ALLERGAN-2206181US

PATIENT
  Sex: Female

DRUGS (1)
  1. KYBELLA [Suspect]
     Active Substance: DEOXYCHOLIC ACID
     Indication: Product used for unknown indication
     Dosage: 4 ML, SINGLE
     Dates: start: 20220131, end: 20220131

REACTIONS (3)
  - Pallor [Recovering/Resolving]
  - Skin wound [Recovering/Resolving]
  - Vascular injury [Unknown]

NARRATIVE: CASE EVENT DATE: 20220201
